FAERS Safety Report 19516203 (Version 1)
Quarter: 2021Q3

REPORT INFORMATION
  Report Type: Spontaneous
  Country: US (occurrence: US)
  Receive Date: 20210709
  Receipt Date: 20210709
  Transmission Date: 20211014
  Serious: No
  Sender: FDA-Public Use
  Company Number: US-ASTELLAS-2021US008399

PATIENT
  Age: 91 Year
  Sex: Male

DRUGS (1)
  1. MYRBETRIQ [Suspect]
     Active Substance: MIRABEGRON
     Indication: PROSTATE CANCER
     Route: 065

REACTIONS (6)
  - Pruritus [Unknown]
  - Repetitive speech [Unknown]
  - Sleep disorder [Unknown]
  - Feeling abnormal [Not Recovered/Not Resolved]
  - Disorganised speech [Unknown]
  - Product use in unapproved indication [Unknown]
